FAERS Safety Report 15612657 (Version 4)
Quarter: 2018Q4

REPORT INFORMATION
  Report Type: Report from Study
  Country: None (occurrence: CH)
  Receive Date: 20181113
  Receipt Date: 20181207
  Transmission Date: 20190205
  Serious: Yes (Hospitalization)
  Sender: FDA-Public Use
  Company Number: CH-ABBVIE-18S-151-2547980-00

PATIENT
  Age: 69 Year
  Sex: Male

DRUGS (3)
  1. DUODOPA [Suspect]
     Active Substance: CARBIDOPA\LEVODOPA
     Dosage: 1ML; CR-DAY 4.5ML/H; ED2ML, 16H THERAPY
     Route: 050
     Dates: start: 20181110
  2. DUODOPA [Suspect]
     Active Substance: CARBIDOPA\LEVODOPA
     Dosage: MD 6ML; CR-DAY 4.1ML/H; ED 2ML, 16H THERAPY
     Route: 050
     Dates: start: 20181003, end: 20181110
  3. DUODOPA [Suspect]
     Active Substance: CARBIDOPA\LEVODOPA
     Indication: PARKINSON^S DISEASE
     Dosage: MD 5ML; CR-DAY 2.8ML/H; ED 1ML, 16H THERAPY
     Route: 050
     Dates: start: 20181002, end: 20181003

REACTIONS (1)
  - Upper limb fracture [Recovering/Resolving]

NARRATIVE: CASE EVENT DATE: 20181104
